FAERS Safety Report 9896924 (Version 20)
Quarter: 2016Q1

REPORT INFORMATION
  Report Type: Spontaneous
  Country: CA (occurrence: CA)
  Receive Date: 20140214
  Receipt Date: 20160204
  Transmission Date: 20160526
  Serious: Yes (Hospitalization)
  Sender: FDA-Public Use
  Company Number: CA-ROCHE-1348518

PATIENT
  Age: 81 Year
  Sex: Male

DRUGS (32)
  1. XOLAIR [Suspect]
     Active Substance: OMALIZUMAB
     Route: 058
     Dates: start: 20140603
  2. XOLAIR [Suspect]
     Active Substance: OMALIZUMAB
     Route: 058
     Dates: start: 20141105
  3. PANCRELIPASE. [Concomitant]
     Active Substance: PANCRELIPASE
  4. SACCHAROMYCES BOULARDII [Concomitant]
     Active Substance: SACCHAROMYCES CEREVISIAE
  5. DENOSUMAB [Concomitant]
     Active Substance: DENOSUMAB
  6. SPIRIVA [Concomitant]
     Active Substance: TIOTROPIUM BROMIDE MONOHYDRATE
  7. XOLAIR [Suspect]
     Active Substance: OMALIZUMAB
     Route: 058
     Dates: start: 20140210
  8. XOLAIR [Suspect]
     Active Substance: OMALIZUMAB
     Route: 058
     Dates: start: 20140505
  9. XOLAIR [Suspect]
     Active Substance: OMALIZUMAB
     Route: 058
     Dates: start: 20140910
  10. XOLAIR [Suspect]
     Active Substance: OMALIZUMAB
     Route: 058
     Dates: start: 20141008
  11. MOXIFLOXACIN. [Concomitant]
     Active Substance: MOXIFLOXACIN
  12. XOLAIR [Suspect]
     Active Substance: OMALIZUMAB
     Route: 058
     Dates: start: 20141022
  13. SYMBICORT [Concomitant]
     Active Substance: BUDESONIDE\FORMOTEROL FUMARATE DIHYDRATE
  14. VENTOLIN [Concomitant]
     Active Substance: ALBUTEROL SULFATE
  15. LOPERAMIDE [Concomitant]
     Active Substance: LOPERAMIDE
  16. NITROGLYCERIN. [Concomitant]
     Active Substance: NITROGLYCERIN
  17. XOLAIR [Suspect]
     Active Substance: OMALIZUMAB
     Route: 058
     Dates: start: 20140310
  18. SINGULAIR [Concomitant]
     Active Substance: MONTELUKAST SODIUM
  19. VITAMIN B12 [Concomitant]
     Active Substance: CYANOCOBALAMIN
  20. XOLAIR [Suspect]
     Active Substance: OMALIZUMAB
     Route: 058
     Dates: start: 20141119
  21. DALTEPARIN [Concomitant]
     Active Substance: DALTEPARIN
  22. GLYCOPYRRONIUM [Concomitant]
     Active Substance: GLYCOPYRRONIUM
  23. ASPIRIN. [Concomitant]
     Active Substance: ASPIRIN
  24. XOLAIR [Suspect]
     Active Substance: OMALIZUMAB
     Indication: ASTHMA
     Route: 058
     Dates: start: 20130211
  25. XOLAIR [Suspect]
     Active Substance: OMALIZUMAB
     Route: 058
     Dates: start: 20140716
  26. GRAVOL [Concomitant]
     Active Substance: DIMENHYDRINATE
  27. PREDNISONE. [Concomitant]
     Active Substance: PREDNISONE
     Route: 048
  28. SODIUM BICARBONATE. [Concomitant]
     Active Substance: SODIUM BICARBONATE
  29. SALBUTAMOL [Concomitant]
     Active Substance: ALBUTEROL
  30. TYLENOL [Concomitant]
     Active Substance: ACETAMINOPHEN
  31. XOLAIR [Suspect]
     Active Substance: OMALIZUMAB
     Route: 058
     Dates: start: 20140924
  32. LANSOPRAZOLE. [Concomitant]
     Active Substance: LANSOPRAZOLE

REACTIONS (27)
  - Feeding tube complication [Unknown]
  - Pneumonia aspiration [Unknown]
  - Acute kidney injury [Unknown]
  - Atelectasis [Unknown]
  - Hypotension [Unknown]
  - Memory impairment [Unknown]
  - Cardiac failure congestive [Unknown]
  - Pneumonia [Unknown]
  - Sputum discoloured [Unknown]
  - Spirometry abnormal [Unknown]
  - Blood carbon monoxide decreased [Unknown]
  - Rales [Unknown]
  - Apathy [Unknown]
  - Respiratory distress [Unknown]
  - Sepsis [Unknown]
  - Hypophosphataemia [Unknown]
  - Productive cough [Unknown]
  - Obstructive airways disorder [Unknown]
  - Cough [Unknown]
  - Troponin increased [Unknown]
  - Hypernatraemia [Unknown]
  - Movement disorder [Unknown]
  - Heart rate increased [Unknown]
  - Asthma [Recovering/Resolving]
  - Chronic obstructive pulmonary disease [Unknown]
  - Pulmonary congestion [Not Recovered/Not Resolved]
  - Cognitive disorder [Unknown]

NARRATIVE: CASE EVENT DATE: 20140505
